FAERS Safety Report 11565850 (Version 1)
Quarter: 2015Q3

REPORT INFORMATION
  Report Type: Report from Study
  Country: US (occurrence: US)
  Receive Date: 20150928
  Receipt Date: 20150928
  Transmission Date: 20151125
  Serious: No
  Sender: FDA-Public Use
  Company Number: US-EXELIXIS-CABO-15005486

PATIENT
  Sex: Female

DRUGS (4)
  1. COMETRIQ [Suspect]
     Active Substance: CABOZANTINIB S-MALATE
     Dosage: 80 MG QD
     Route: 048
     Dates: start: 2015
  2. COMETRIQ [Suspect]
     Active Substance: CABOZANTINIB S-MALATE
     Indication: GASTRIC CANCER
     Dosage: 100 MG, QD
     Route: 048
     Dates: start: 20150604, end: 20150721
  3. REMERON [Concomitant]
     Active Substance: MIRTAZAPINE
  4. COMETRIQ [Suspect]
     Active Substance: CABOZANTINIB S-MALATE
     Dosage: 80 MG, QD
     Dates: start: 20150722, end: 2015

REACTIONS (11)
  - Headache [Unknown]
  - Muscle atrophy [Unknown]
  - Diarrhoea [Not Recovered/Not Resolved]
  - Subcutaneous abscess [Recovering/Resolving]
  - Depression [Unknown]
  - Fatigue [Not Recovered/Not Resolved]
  - Decreased appetite [Not Recovered/Not Resolved]
  - Ageusia [Unknown]
  - Arthralgia [Unknown]
  - Stomatitis [Unknown]
  - Off label use [Unknown]

NARRATIVE: CASE EVENT DATE: 2015
